FAERS Safety Report 4687483-7 (Version None)
Quarter: 2005Q2

REPORT INFORMATION
  Report Type: 
  Country: None (occurrence: None)
  Receive Date: 20050608
  Receipt Date: 20050608
  Transmission Date: 20051028
  Serious: No
  Sender: FDA-Public Use
  Company Number: None

PATIENT
  Age: 6 Year
  Sex: Female
  Weight: 19.9583 kg

DRUGS (4)
  1. CLARITIN [Suspect]
     Indication: EYE PRURITUS
     Dosage: 1 TSP   DAY    ORAL
     Route: 048
     Dates: start: 20050503, end: 20050507
  2. CLARITIN [Suspect]
     Indication: HYPERSENSITIVITY
     Dosage: 1 TSP   DAY    ORAL
     Route: 048
     Dates: start: 20050503, end: 20050507
  3. CLARITIN [Suspect]
     Indication: LACRIMATION INCREASED
     Dosage: 1 TSP   DAY    ORAL
     Route: 048
     Dates: start: 20050503, end: 20050507
  4. CLARITIN [Suspect]
     Indication: SNEEZING
     Dosage: 1 TSP   DAY    ORAL
     Route: 048
     Dates: start: 20050503, end: 20050507

REACTIONS (1)
  - ALOPECIA [None]
